FAERS Safety Report 6180488-9 (Version None)
Quarter: 2009Q2

REPORT INFORMATION
  Report Type: 
  Country: None (occurrence: None)
  Receive Date: 20090504
  Receipt Date: 20090504
  Transmission Date: 20091009
  Serious: Yes (Other)
  Sender: FDA-Public Use
  Company Number: None

PATIENT
  Sex: Female
  Weight: 79.3795 kg

DRUGS (1)
  1. ALENDRONATE SODIUM [Suspect]
     Indication: OSTEOPOROSIS
     Dosage: ONCE PER SEVEN DAYS ONCE PER SEVEN DAY PO
     Route: 048
     Dates: start: 20080201, end: 20090424

REACTIONS (2)
  - BONE PAIN [None]
  - PAIN IN JAW [None]
